FAERS Safety Report 18590123 (Version 1)
Quarter: 2020Q4

REPORT INFORMATION
  Report Type: Spontaneous
  Country: US (occurrence: US)
  Receive Date: 20201208
  Receipt Date: 20201208
  Transmission Date: 20210114
  Serious: No
  Sender: FDA-Public Use
  Company Number: None

PATIENT
  Age: 78 Year
  Sex: Female
  Weight: 71.1 kg

DRUGS (20)
  1. PROPRANOLOL HCL [Concomitant]
     Active Substance: PROPRANOLOL HYDROCHLORIDE
  2. MULTIVITAMIN WOMEN 50+ [Concomitant]
  3. FLONASE ALLERGY RELIEF [Concomitant]
     Active Substance: FLUTICASONE PROPIONATE
  4. IBRANCE [Suspect]
     Active Substance: PALBOCICLIB
     Indication: BREAST CANCER
     Route: 048
     Dates: start: 20190923
  5. FASLODEX [Concomitant]
     Active Substance: FULVESTRANT
  6. ASPERCREME NOS [Concomitant]
     Active Substance: MENTHOL\TROLAMINE SALICYLATE
  7. ASPIRIN 81 [Concomitant]
     Active Substance: ASPIRIN
  8. MAGNESIUM OXIDE. [Concomitant]
     Active Substance: MAGNESIUM OXIDE
  9. SYSTANE (HYPROMELLOSE 2910 (4000 MPA.S)) [Concomitant]
     Active Substance: HYPROMELLOSE 2910 (4000 MPA.S)
  10. LUTEIN [Concomitant]
     Active Substance: LUTEIN
  11. ALVESCO [Concomitant]
     Active Substance: CICLESONIDE
  12. SIMVASTATIN. [Concomitant]
     Active Substance: SIMVASTATIN
  13. TRIAMCINOLONE ACETONIDE. [Concomitant]
     Active Substance: TRIAMCINOLONE ACETONIDE
  14. FULVESTRANT. [Concomitant]
     Active Substance: FULVESTRANT
  15. ZYRTEC-D ALLERGY + CONGESTION [Concomitant]
  16. MIRALAX [Concomitant]
     Active Substance: POLYETHYLENE GLYCOL 3350
  17. FUROSEMIDE. [Concomitant]
     Active Substance: FUROSEMIDE
  18. GLUCOSAMINE CHONDR 1500 COMPLX [Concomitant]
  19. VITAMIN D [Concomitant]
     Active Substance: VITAMIN D NOS
  20. IRBESARTAN. [Concomitant]
     Active Substance: IRBESARTAN

REACTIONS (1)
  - Neutropenia [None]

NARRATIVE: CASE EVENT DATE: 20201208
